FAERS Safety Report 17136944 (Version 1)
Quarter: 2019Q4

REPORT INFORMATION
  Report Type: Spontaneous
  Country: ES (occurrence: ES)
  Receive Date: 20191210
  Receipt Date: 20191210
  Transmission Date: 20200122
  Serious: Yes (Disabling, Other)
  Sender: FDA-Public Use
  Company Number: ES-PFIZER INC-2019529682

PATIENT
  Age: 56 Year
  Sex: Male

DRUGS (8)
  1. PREGABALIN. [Suspect]
     Active Substance: PREGABALIN
     Indication: PAIN
     Dosage: 25 MG, 2X/DAY(EVERY 12 HOURS)
  2. METAMIZOLE MAGNESIUM [Suspect]
     Active Substance: METAMIZOLE MAGNESIUM
     Indication: PAIN
     Dosage: 575 MG, 3X/DAY(EVERY 8 HOURS)
  3. FENTANYL TRANSDERMAL SYSTEM [Suspect]
     Active Substance: FENTANYL
     Indication: PAIN
     Dosage: 1 PATCH OF 100 MCG/HR EVERY 72HRS
  4. ACTIQ [Suspect]
     Active Substance: FENTANYL CITRATE
     Indication: PAIN
     Dosage: UNK
     Route: 060
  5. DEXAMETHASONE. [Concomitant]
     Active Substance: DEXAMETHASONE
     Dosage: 4 MG, UNK
  6. MORPHINE [Concomitant]
     Active Substance: MORPHINE
     Dosage: 10 MG, EVERY 4 HOURS MAX
  7. BOSENTAN. [Suspect]
     Active Substance: BOSENTAN
     Indication: PAIN
     Dosage: UNK
  8. PARACETAMOL [Suspect]
     Active Substance: ACETAMINOPHEN
     Indication: PAIN
     Dosage: 1 G, 3X/DAY(EVERY 8 HOURS)

REACTIONS (8)
  - Paraesthesia [Unknown]
  - Constipation [Unknown]
  - Motor dysfunction [Unknown]
  - Disease progression [Unknown]
  - Multiple sclerosis [Unknown]
  - Paraplegia [Unknown]
  - Ulcer [Unknown]
  - Urinary retention [Unknown]
